FAERS Safety Report 6311541-4 (Version None)
Quarter: 2009Q3

REPORT INFORMATION
  Report Type: 
  Country: None (occurrence: None)
  Receive Date: 20090817
  Receipt Date: 20090807
  Transmission Date: 20100115
  Serious: Yes (Other)
  Sender: FDA-Public Use
  Company Number: GB-PFIZER INC-2009252774

PATIENT
  Age: 67 Year

DRUGS (5)
  1. DILTIAZEM HCL [Suspect]
     Indication: CARDIAC DISORDER
     Dosage: 120 MG, 1X/DAY
     Dates: start: 20090508
  2. DILTIAZEM HCL [Suspect]
     Dosage: UNK
  3. LIPITOR [Suspect]
     Dosage: 10 MG, 1X/DAY
     Dates: start: 20050606, end: 20090428
  4. LIPITOR [Suspect]
     Dosage: 15 MG, 1X/DAY
     Dates: start: 20070711
  5. LANSOPRAZOLE [Concomitant]
     Dosage: 15 MG, 1X/DAY
     Dates: start: 20070711

REACTIONS (4)
  - BLOOD CREATINE PHOSPHOKINASE INCREASED [None]
  - CARDIAC ENZYMES INCREASED [None]
  - DRUG INTERACTION [None]
  - MYALGIA [None]
